FAERS Safety Report 9111427 (Version 1)
Quarter: 2013Q1

REPORT INFORMATION
  Report Type: Spontaneous
  Country: US (occurrence: US)
  Receive Date: 20130219
  Receipt Date: 20130219
  Transmission Date: 20140127
  Serious: No
  Sender: FDA-Public Use
  Company Number: US-BRISTOL-MYERS SQUIBB COMPANY-17059577

PATIENT
  Age: 40 Year
  Sex: Male
  Weight: 76.64 kg

DRUGS (4)
  1. ORENCIA [Suspect]
     Indication: RHEUMATOID ARTHRITIS
     Dosage: LAST INFUSION: 17OCT2012
     Route: 042
  2. TRAMADOL [Concomitant]
  3. NEXIUM [Concomitant]
  4. LOSARTAN [Concomitant]
     Indication: HYPERTENSION

REACTIONS (3)
  - Arthropod bite [Not Recovered/Not Resolved]
  - Wound [Not Recovered/Not Resolved]
  - Contusion [Not Recovered/Not Resolved]
